FAERS Safety Report 4836536-9 (Version None)
Quarter: 2005Q4

REPORT INFORMATION
  Report Type: 
  Country: None (occurrence: None)
  Receive Date: 20051118
  Receipt Date: 20051109
  Transmission Date: 20060501
  Serious: Yes (Hospitalization)
  Sender: FDA-Public Use
  Company Number: ZONI002234

PATIENT
  Age: 17 Year
  Sex: Female

DRUGS (1)
  1. ZONISAMIDE [Suspect]
     Indication: EPILEPSY
     Dosage: 5000 MG, 50 IN 1 D, ORAL
     Route: 049

REACTIONS (3)
  - MYDRIASIS [None]
  - OVERDOSE [None]
  - SUICIDE ATTEMPT [None]
